FAERS Safety Report 19144858 (Version 2)
Quarter: 2021Q3

REPORT INFORMATION
  Report Type: Spontaneous
  Country: JP (occurrence: JP)
  Receive Date: 20210416
  Receipt Date: 20210720
  Transmission Date: 20211014
  Serious: Yes (Hospitalization, Other)
  Sender: FDA-Public Use
  Company Number: JP-BRISTOL-MYERS SQUIBB COMPANY-BMS-2021-036283

PATIENT
  Age: 78 Year
  Sex: Female
  Weight: 49.6 kg

DRUGS (5)
  1. OPDIVO [Suspect]
     Active Substance: NIVOLUMAB
     Indication: METASTATIC RENAL CELL CARCINOMA
     Dosage: 240 MILLIGRAM
     Route: 041
     Dates: start: 20191220, end: 20200728
  2. ALLOPURINOL. [Concomitant]
     Active Substance: ALLOPURINOL
     Indication: HYPERURICAEMIA
     Dosage: 100 MG, EVERYDAY
     Route: 048
     Dates: start: 20140616
  3. DEBERZA [Concomitant]
     Active Substance: TOFOGLIFLOZIN
     Indication: DIABETES MELLITUS
     Dosage: 20 MG, EVERYDAY
     Route: 048
     Dates: start: 20140616
  4. AZILVA [Concomitant]
     Active Substance: AZILSARTAN KAMEDOXOMIL
     Indication: HYPERTENSION
     Dosage: 20 MG, EVERYDAY
     Route: 048
     Dates: start: 20191129, end: 20201030
  5. TRAZENTA [Suspect]
     Active Substance: LINAGLIPTIN
     Indication: DIABETES MELLITUS
     Dosage: 5 MG, EVERYDAY
     Route: 048
     Dates: start: 20140616, end: 20200909

REACTIONS (1)
  - Pemphigoid [Recovering/Resolving]

NARRATIVE: CASE EVENT DATE: 20200925
